FAERS Safety Report 4476571-6 (Version None)
Quarter: 2004Q4

REPORT INFORMATION
  Report Type: 
  Country: None (occurrence: None)
  Receive Date: 20041014
  Receipt Date: 20041003
  Transmission Date: 20050328
  Serious: Yes (Other)
  Sender: FDA-Public Use
  Company Number: 2004072862

PATIENT
  Age: 18 Year
  Sex: Male
  Weight: 58.9676 kg

DRUGS (1)
  1. DRAMAMINE [Suspect]
     Dosage: 12 TABLETS ONCE, ORAL
     Route: 048
     Dates: start: 20041003, end: 20041003

REACTIONS (2)
  - DEPRESSED LEVEL OF CONSCIOUSNESS [None]
  - OVERDOSE [None]
